FAERS Safety Report 25767832 (Version 1)
Quarter: 2025Q3

REPORT INFORMATION
  Report Type: Spontaneous
  Country: SA (occurrence: SA)
  Receive Date: 20250905
  Receipt Date: 20250905
  Transmission Date: 20251021
  Serious: Yes (Hospitalization)
  Sender: BIOMARIN
  Company Number: SA-BIOMARINAP-SA-2025-168494

PATIENT
  Sex: Female

DRUGS (1)
  1. VIMIZIM [Suspect]
     Active Substance: ELOSULFASE ALFA
     Indication: Mucopolysaccharidosis IV
     Dosage: 30 MILLIGRAM, QW

REACTIONS (1)
  - Knee deformity [Recovering/Resolving]
